FAERS Safety Report 7200645-X (Version None)
Quarter: 2010Q4

REPORT INFORMATION
  Report Type: 
  Country: None (occurrence: None)
  Receive Date: 20101228
  Receipt Date: 20101221
  Transmission Date: 20110411
  Serious: Yes (Other)
  Sender: FDA-Public Use
  Company Number: US-PFIZER INC-2010017120

PATIENT
  Sex: Female
  Weight: 83.447 kg

DRUGS (22)
  1. CHANTIX [Suspect]
     Indication: SMOKING CESSATION THERAPY
     Dosage: 0.5 MG, 1X/DAY
     Route: 048
     Dates: start: 20100101, end: 20100101
  2. CHANTIX [Suspect]
     Dosage: 1 MG, 2X/DAY
     Route: 048
     Dates: start: 20100101
  3. CHANTIX [Suspect]
     Dosage: UNK
     Route: 048
     Dates: start: 20100101
  4. PROZAC [Concomitant]
     Indication: SEASONAL AFFECTIVE DISORDER
     Dosage: 20 MG, UNK
  5. PROZAC [Concomitant]
     Dosage: 20 MG, UNK
  6. COMPAZINE [Concomitant]
     Dosage: UNK
  7. PROVENTIL /OLD FORM/ [Concomitant]
     Indication: CHRONIC OBSTRUCTIVE PULMONARY DISEASE
     Dosage: UNK
  8. KLONOPIN [Concomitant]
     Indication: RESTLESS LEGS SYNDROME
     Dosage: UNK
  9. RELAFEN [Concomitant]
     Indication: BONE PAIN
     Dosage: UNK
  10. RELAFEN [Concomitant]
     Indication: ARTHRITIS
  11. RELAFEN [Concomitant]
     Indication: PAIN IN EXTREMITY
  12. RELAFEN [Concomitant]
     Indication: BACK PAIN
  13. REGLAN [Concomitant]
     Dosage: UNK
  14. REQUIP [Concomitant]
     Dosage: UNK
  15. LORAZEPAM [Concomitant]
     Dosage: UNK
  16. BUSPAR [Concomitant]
     Dosage: UNK
  17. LUNESTA [Concomitant]
     Indication: SLEEP DISORDER
     Dosage: UNK
  18. PREVACID [Concomitant]
     Dosage: UNK
  19. SYNTHROID [Concomitant]
     Dosage: UNK
  20. ACIDOPHILUS [Concomitant]
     Indication: GASTROINTESTINAL DISORDER
     Dosage: UNK
  21. FIBERCON [Concomitant]
     Indication: GASTROINTESTINAL DISORDER
     Dosage: UNK
  22. MAGNESIUM OXIDE [Concomitant]
     Dosage: UNK

REACTIONS (8)
  - CHRONIC OBSTRUCTIVE PULMONARY DISEASE [None]
  - DEPENDENCE [None]
  - DEPRESSED MOOD [None]
  - DYSPNOEA [None]
  - HEPATIC ENZYME INCREASED [None]
  - LUNG DISORDER [None]
  - SLEEP DISORDER [None]
  - WEIGHT DECREASED [None]
